FAERS Safety Report 6990382-9 (Version None)
Quarter: 2010Q3

REPORT INFORMATION
  Report Type: 
  Country: None (occurrence: None)
  Receive Date: 20100916
  Receipt Date: 20100620
  Transmission Date: 20110219
  Serious: Yes (Other)
  Sender: FDA-Public Use
  Company Number: US-PFIZER INC-2010077267

PATIENT
  Sex: Female
  Weight: 88.889 kg

DRUGS (5)
  1. LYRICA [Suspect]
     Indication: PAIN
     Dosage: 75 MG, 2X/DAY
     Dates: start: 20091101, end: 20100301
  2. METFORMIN [Concomitant]
     Dosage: 500 MG, 2X/DAY
  3. BENAZEPRIL [Concomitant]
     Dosage: 20 MG, DAILY
  4. PRAVASTATIN [Concomitant]
     Dosage: 20 MG, 2X/DAY
  5. GLYBURIDE [Concomitant]
     Dosage: 5 MG, 2X/DAY

REACTIONS (8)
  - FACE OEDEMA [None]
  - GAIT DISTURBANCE [None]
  - JOINT SWELLING [None]
  - MOBILITY DECREASED [None]
  - MUSCULOSKELETAL PAIN [None]
  - OEDEMA PERIPHERAL [None]
  - PAIN IN EXTREMITY [None]
  - WEIGHT INCREASED [None]
